FAERS Safety Report 11993025 (Version 1)
Quarter: 2016Q1

REPORT INFORMATION
  Report Type: Spontaneous
  Country: US (occurrence: None)
  Receive Date: 20160202
  Receipt Date: 20160202
  Transmission Date: 20160526
  Serious: Yes (Disabling)
  Sender: FDA-Public Use
  Company Number: None

PATIENT
  Age: 42 Year
  Sex: Male

DRUGS (2)
  1. OLD SPICE PLAYMAKER HIGH ENDURANCE [Suspect]
     Active Substance: ALUMINUM ZIRCONIUM TRICHLOROHYDREX GLY
     Dosage: 2 SWIPES PER ARM, ONCE A DAY, TOPICAL
     Route: 061
     Dates: end: 20160104
  2. OLD SPICE HIGH ENDURANCE FRESH [Suspect]
     Active Substance: ALUMINUM ZIRCONIUM TRICHLOROHYDREX GLY
     Dosage: 2 SWIPES PER ARM, ONCE A DAY, TOPICAL
     Dates: end: 20160104

REACTIONS (6)
  - Chemical injury [None]
  - Movement disorder [None]
  - Impaired work ability [None]
  - Skin lesion [None]
  - Secretion discharge [None]
  - Pain [None]
